FAERS Safety Report 23073880 (Version 1)
Quarter: 2023Q4

REPORT INFORMATION
  Report Type: Spontaneous
  Country: US (occurrence: US)
  Receive Date: 20231017
  Receipt Date: 20231017
  Transmission Date: 20240109
  Serious: Yes (Other)
  Sender: FDA-Public Use
  Company Number: US-KOREA IPSEN Pharma-2023-23794

PATIENT
  Age: 76 Year
  Sex: Male

DRUGS (1)
  1. LANREOTIDE ACETATE [Suspect]
     Active Substance: LANREOTIDE ACETATE
     Indication: Carcinoid tumour
     Route: 065

REACTIONS (5)
  - Cardiac arrest [Unknown]
  - Hypotension [Unknown]
  - Pulse absent [Unknown]
  - Flushing [Unknown]
  - Drug ineffective [Unknown]
